FAERS Safety Report 12225306 (Version 2)
Quarter: 2016Q2

REPORT INFORMATION
  Report Type: Spontaneous
  Country: US (occurrence: US)
  Receive Date: 20160331
  Receipt Date: 20160512
  Transmission Date: 20160815
  Serious: Yes (Hospitalization, Other)
  Sender: FDA-Public Use
  Company Number: US-GLAXOSMITHKLINE-US2016043154

PATIENT
  Age: 65 Year
  Sex: Male

DRUGS (8)
  1. SEROQUEL [Concomitant]
     Active Substance: QUETIAPINE FUMARATE
  2. TAMSULOSIN [Concomitant]
     Active Substance: TAMSULOSIN
  3. WARFARIN [Concomitant]
     Active Substance: WARFARIN
  4. ADVAIR DISKUS [Suspect]
     Active Substance: FLUTICASONE PROPIONATE\SALMETEROL XINAFOATE
     Indication: CHRONIC OBSTRUCTIVE PULMONARY DISEASE
     Dosage: 1 PUFF(S), BID
     Route: 055
     Dates: start: 201306
  5. PAROXETINE. [Concomitant]
     Active Substance: PAROXETINE
  6. SIMVASTATIN. [Concomitant]
     Active Substance: SIMVASTATIN
  7. ADVAIR DISKUS [Suspect]
     Active Substance: FLUTICASONE PROPIONATE\SALMETEROL XINAFOATE
     Dosage: 500/50 UG
     Dates: start: 20130809
  8. GABAPENTIN. [Concomitant]
     Active Substance: GABAPENTIN

REACTIONS (7)
  - Myasthenia gravis [Unknown]
  - Gait disturbance [Not Recovered/Not Resolved]
  - Fall [Recovered/Resolved with Sequelae]
  - Coma [Recovered/Resolved with Sequelae]
  - Muscular weakness [Not Recovered/Not Resolved]
  - Rehabilitation therapy [Unknown]
  - Confusional state [Unknown]

NARRATIVE: CASE EVENT DATE: 2013
